FAERS Safety Report 15409483 (Version 2)
Quarter: 2018Q4

REPORT INFORMATION
  Report Type: Spontaneous
  Country: US (occurrence: US)
  Receive Date: 20180920
  Receipt Date: 20181015
  Transmission Date: 20190204
  Serious: No
  Sender: FDA-Public Use
  Company Number: US-009507513-1809USA008307

PATIENT
  Age: 25 Year
  Sex: Female
  Weight: 68.03 kg

DRUGS (2)
  1. ZOLOFT [Concomitant]
     Active Substance: SERTRALINE HYDROCHLORIDE
     Dosage: 25 MG, UNK
     Route: 048
  2. NEXPLANON [Suspect]
     Active Substance: ETONOGESTREL
     Indication: CONTRACEPTION
     Dosage: 1 DF, UNK
     Route: 059
     Dates: start: 20170214, end: 20180918

REACTIONS (6)
  - Implant site pain [Recovered/Resolved]
  - Wrong technique in product usage process [Unknown]
  - Device kink [Recovered/Resolved]
  - Device breakage [Recovered/Resolved]
  - Menstruation irregular [Recovered/Resolved]
  - Device deployment issue [Recovered/Resolved]

NARRATIVE: CASE EVENT DATE: 20170214
